FAERS Safety Report 12145714 (Version 1)
Quarter: 2016Q1

REPORT INFORMATION
  Report Type: Spontaneous
  Country: US (occurrence: None)
  Receive Date: 20160303
  Receipt Date: 20160303
  Transmission Date: 20160526
  Serious: Yes (Hospitalization)
  Sender: FDA-Public Use
  Company Number: None

PATIENT
  Age: 59 Year
  Sex: Male
  Weight: 96.5 kg

DRUGS (1)
  1. BEVACIZUMAB (RHUMAB VEGEF) [Suspect]
     Active Substance: BEVACIZUMAB
     Dates: end: 20160222

REACTIONS (5)
  - Disease progression [None]
  - Headache [None]
  - Gait disturbance [None]
  - Fatigue [None]
  - Vision blurred [None]

NARRATIVE: CASE EVENT DATE: 20160215
